FAERS Safety Report 21390676 (Version 1)
Quarter: 2022Q3

REPORT INFORMATION
  Report Type: Spontaneous
  Country: CA (occurrence: CA)
  Receive Date: 20220929
  Receipt Date: 20220929
  Transmission Date: 20221026
  Serious: Yes (Other)
  Sender: FDA-Public Use
  Company Number: CA-JNJFOC-20220949488

PATIENT
  Age: 64 Year
  Sex: Female
  Weight: 61 kg

DRUGS (2)
  1. REMICADE [Suspect]
     Active Substance: INFLIXIMAB
     Indication: Crohn^s disease
     Route: 041
  2. PREDNISONE [Concomitant]
     Active Substance: PREDNISONE

REACTIONS (13)
  - Rheumatoid arthritis [Not Recovered/Not Resolved]
  - Vulvovaginal swelling [Not Recovered/Not Resolved]
  - Gait disturbance [Not Recovered/Not Resolved]
  - Drug level increased [Not Recovered/Not Resolved]
  - Peripheral swelling [Not Recovered/Not Resolved]
  - Condition aggravated [Not Recovered/Not Resolved]
  - Arthralgia [Not Recovered/Not Resolved]
  - Erythema [Not Recovered/Not Resolved]
  - Feeling hot [Not Recovered/Not Resolved]
  - Oedema [Not Recovered/Not Resolved]
  - Pain [Not Recovered/Not Resolved]
  - Pain in extremity [Not Recovered/Not Resolved]
  - Off label use [Not Recovered/Not Resolved]
